FAERS Safety Report 7717189-9 (Version None)
Quarter: 2011Q3

REPORT INFORMATION
  Report Type: 
  Country: None (occurrence: None)
  Receive Date: 20110826
  Receipt Date: 20110826
  Transmission Date: 20111222
  Serious: Yes (Hospitalization)
  Sender: FDA-Public Use
  Company Number: None

PATIENT
  Sex: Female
  Weight: 84.4 kg

DRUGS (5)
  1. COMPAZINE [Concomitant]
  2. DEXAMETHASONE [Concomitant]
  3. ZOFRAN [Concomitant]
  4. CARBOPLATIN [Suspect]
     Dosage: 620 MG
  5. TAXOL [Suspect]
     Dosage: 326 MG

REACTIONS (1)
  - CELLULITIS [None]
